FAERS Safety Report 7042435-7 (Version None)
Quarter: 2010Q4

REPORT INFORMATION
  Report Type: 
  Country: None (occurrence: None)
  Receive Date: 20101013
  Receipt Date: 20091207
  Transmission Date: 20110411
  Serious: No
  Sender: FDA-Public Use
  Company Number: US-ASTRAZENECA-2009SE30627

PATIENT
  Age: 22587 Day
  Sex: Female
  Weight: 90.7 kg

DRUGS (5)
  1. SYMBICORT [Suspect]
     Indication: CHRONIC OBSTRUCTIVE PULMONARY DISEASE
     Dosage: 2 PUFFS BID
     Route: 055
     Dates: start: 20091026
  2. SYNTHROID [Concomitant]
  3. DIOVAN [Concomitant]
  4. COMBIVENT [Concomitant]
  5. XOPONEX [Concomitant]

REACTIONS (2)
  - HAEMORRHAGE [None]
  - IMPAIRED HEALING [None]
